FAERS Safety Report 8086139-0 (Version None)
Quarter: 2012Q1

REPORT INFORMATION
  Report Type: 
  Country: None (occurrence: None)
  Receive Date: 20120128
  Receipt Date: 20110414
  Transmission Date: 20120608
  Serious: No
  Sender: FDA-Public Use
  Company Number: US-ABBOTT-11P-163-0719164-00

PATIENT
  Sex: Female

DRUGS (8)
  1. HUMIRA [Suspect]
     Route: 058
  2. LEVOTHYROXINE SODIUM [Concomitant]
     Indication: PRODUCT USED FOR UNKNOWN INDICATION
  3. HUMIRA [Suspect]
     Indication: PSORIASIS
     Dosage: 80 MG/SQ DAY 1, 40 MG SC/DAY 8 AND 40 MG SC/DAY 22
     Route: 058
     Dates: start: 20110210
  4. HUMIRA [Suspect]
     Route: 058
  5. TOPAMAX D [Concomitant]
     Indication: MIGRAINE
  6. ESTRADIOL [Concomitant]
     Indication: HORMONE REPLACEMENT THERAPY
  7. ACID REDUCER [Concomitant]
     Indication: GASTRIC PH DECREASED
  8. XANAX [Concomitant]
     Indication: MIGRAINE

REACTIONS (1)
  - PSORIASIS [None]
